FAERS Safety Report 8169253-0 (Version None)
Quarter: 2012Q1

REPORT INFORMATION
  Report Type: 
  Country: None (occurrence: None)
  Receive Date: 20120228
  Receipt Date: 20120210
  Transmission Date: 20120608
  Serious: Yes (Life-Threatening, Hospitalization)
  Sender: FDA-Public Use
  Company Number: SE-ASTRAZENECA-2012SE09387

PATIENT
  Age: 55 Year
  Sex: Female

DRUGS (4)
  1. METFORMIN HCL [Suspect]
     Indication: TYPE 2 DIABETES MELLITUS
     Route: 048
  2. RAMIPRIL [Suspect]
  3. ATENOLOL [Suspect]
  4. SIMVASTATIN [Concomitant]

REACTIONS (7)
  - CONTINUOUS HAEMODIAFILTRATION [None]
  - COMA [None]
  - BLOOD PRESSURE IMMEASURABLE [None]
  - HAEMODYNAMIC INSTABILITY [None]
  - RENAL FAILURE ACUTE [None]
  - LACTIC ACIDOSIS [None]
  - RESPIRATORY RATE INCREASED [None]
